FAERS Safety Report 4568366-X (Version None)
Quarter: 2005Q1

REPORT INFORMATION
  Report Type: 
  Country: None (occurrence: None)
  Receive Date: 20050131
  Receipt Date: 20050118
  Transmission Date: 20050727
  Serious: Yes (Death, Hospitalization, Disabling, Other)
  Sender: FDA-Public Use
  Company Number: 2004-00846

PATIENT
  Age: 54 Year
  Sex: Female
  Weight: 80 kg

DRUGS (17)
  1. VELCADE [Suspect]
     Indication: MULTIPLE MYELOMA
     Dosage: 1.30 MG/M2, 2/WEEK, INTRAVENOUS
     Route: 042
     Dates: start: 20041105, end: 20041116
  2. ACYCLOVIR [Concomitant]
  3. ITRACONAZOLE [Concomitant]
  4. OXYCODONE (OXYCODONE) [Concomitant]
  5. RANITIDINE [Concomitant]
  6. OMEPRAZOLE [Concomitant]
  7. ONDANSETRON HCL [Concomitant]
  8. NEUPOGEN [Concomitant]
  9. MEROPENEM (MEROPENEM) [Concomitant]
  10. CLARITHROMYCIN [Concomitant]
  11. ASPIRIN [Concomitant]
  12. PREDNISOLONE [Concomitant]
  13. AZATHIOPRINE [Concomitant]
  14. ENOXAPARIN SODIUM [Concomitant]
  15. VANCOMYCIN [Concomitant]
  16. FENTANYL [Concomitant]
  17. NYSTATIN [Concomitant]

REACTIONS (5)
  - DYSPHASIA [None]
  - HYPOAESTHESIA [None]
  - HYPOAESTHESIA ORAL [None]
  - PERIPHERAL SENSORIMOTOR NEUROPATHY [None]
  - SOMNOLENCE [None]
